FAERS Safety Report 11734503 (Version 1)
Quarter: 2015Q4

REPORT INFORMATION
  Report Type: Spontaneous
  Country: US (occurrence: US)
  Receive Date: 20151113
  Receipt Date: 20151113
  Transmission Date: 20160304
  Serious: No
  Sender: FDA-Public Use
  Company Number: US-009507513-1511USA005467

PATIENT
  Sex: Female

DRUGS (2)
  1. IRON (UNSPECIFIED) (+) MINERALS (UNSPECIFIED) (+) VITAMINS (UNSPECIFIE [Concomitant]
     Active Substance: IRON\MINERALS\VITAMINS
  2. FOLLISTIM [Suspect]
     Active Substance: FOLLITROPIN
     Dosage: UNITS IN THE EVENING
     Route: 058

REACTIONS (2)
  - Incorrect product storage [Unknown]
  - Blood oestrogen decreased [Unknown]
